FAERS Safety Report 23838544 (Version 2)
Quarter: 2024Q2

REPORT INFORMATION
  Report Type: Spontaneous
  Country: DE (occurrence: DE)
  Receive Date: 20240509
  Receipt Date: 20240520
  Transmission Date: 20240715
  Serious: Yes (Other)
  Sender: FDA-Public Use
  Company Number: DE-EXELTIS PHARMACEUTICAL HOLDING, S.L.-2310DE07138

PATIENT
  Sex: Female

DRUGS (1)
  1. DROSPIRENONE [Suspect]
     Active Substance: DROSPIRENONE
     Indication: Contraception
     Dosage: UNK

REACTIONS (8)
  - Suicidal ideation [Unknown]
  - Diarrhoea [Unknown]
  - Inappropriate schedule of product administration [Unknown]
  - Amenorrhoea [Not Recovered/Not Resolved]
  - Acne [Recovering/Resolving]
  - Dehydroepiandrosterone increased [Unknown]
  - Blood prolactin increased [Unknown]
  - Dysmenorrhoea [Unknown]
